FAERS Safety Report 8262089-1 (Version None)
Quarter: 2012Q2

REPORT INFORMATION
  Report Type: 
  Country: None (occurrence: None)
  Receive Date: 20120405
  Receipt Date: 20120328
  Transmission Date: 20120825
  Serious: Yes (Hospitalization)
  Sender: FDA-Public Use
  Company Number: PHHY2012DE027511

PATIENT
  Sex: Male

DRUGS (9)
  1. GLIMEPIRIDE [Concomitant]
  2. TORSEMIDE [Concomitant]
     Indication: RENAL FAILURE
     Route: 048
  3. LANTUS [Concomitant]
  4. RASILEZ [Suspect]
     Indication: HYPERTENSION
     Dosage: 1 DF, DAILY
     Route: 048
     Dates: start: 20111220, end: 20120113
  5. RAMIPRIL [Suspect]
     Indication: HYPERTENSION
     Dosage: 1 DF, BID
     Route: 048
     Dates: start: 20120113
  6. PREDNISOLONE [Concomitant]
     Indication: MUSCULOSKELETAL PAIN
     Dosage: 0.5 DF, UNK
     Route: 048
  7. AMLODIPINE [Concomitant]
     Dosage: 1 DF, BID
  8. MIRTAZAPINE [Concomitant]
     Indication: DEPRESSION
     Route: 048
  9. METOPROLOL SUCCINATE [Concomitant]
     Dosage: 1 DF, BID

REACTIONS (3)
  - HYPERKALAEMIA [None]
  - RENAL IMPAIRMENT [None]
  - BLOOD CREATININE INCREASED [None]
